FAERS Safety Report 8452415 (Version 2)
Quarter: 2013Q3

REPORT INFORMATION
  Report Type: Spontaneous
  Country: US (occurrence: US)
  Receive Date: 20120312
  Receipt Date: 20130719
  Transmission Date: 20140515
  Serious: No
  Sender: FDA-Public Use
  Company Number: US-PFIZER INC-2012062691

PATIENT
  Age: 62 Year
  Sex: Male
  Weight: 97.51 kg

DRUGS (8)
  1. CHANTIX [Suspect]
     Indication: SMOKING CESSATION THERAPY
     Dosage: 0.5 MG, 1X/DAY
     Route: 048
     Dates: start: 201202, end: 201202
  2. CHANTIX [Suspect]
     Dosage: UNK
     Dates: start: 201202
  3. METFORMIN [Concomitant]
     Indication: DIABETES MELLITUS
     Dosage: 500 MG, 2X/DAY
  4. GLIPIZIDE [Concomitant]
     Indication: DIABETES MELLITUS
     Dosage: 5 MG, 1X/DAY
  5. TERAZOSIN [Concomitant]
     Dosage: UNK
  6. VIAGRA [Concomitant]
     Dosage: UNK
  7. ACCUPRIL [Concomitant]
     Dosage: UNK
  8. ACETYLSALICYLIC ACID [Concomitant]
     Dosage: UNK

REACTIONS (3)
  - Rash pruritic [Unknown]
  - Rash macular [Unknown]
  - Abnormal dreams [Unknown]
